FAERS Safety Report 5245462-5 (Version None)
Quarter: 2007Q1

REPORT INFORMATION
  Report Type: 
  Country: None (occurrence: None)
  Receive Date: 20070223
  Receipt Date: 20070214
  Transmission Date: 20070707
  Serious: Yes (Hospitalization, Other)
  Sender: FDA-Public Use
  Company Number: US-ELI_LILLY_AND_COMPANY-US200702002846

PATIENT
  Sex: Male

DRUGS (4)
  1. HUMULIN R [Suspect]
     Indication: DIABETES MELLITUS
     Dosage: UNK, UNK
     Dates: start: 20060601
  2. HUMULIN N [Suspect]
     Indication: DIABETES MELLITUS
     Dosage: UNK, 2/D
     Dates: start: 20060101
  3. HUMALOG [Suspect]
     Indication: DIABETES MELLITUS
     Dosage: UNK, UNK
     Dates: start: 20060601, end: 20060601
  4. HUMULIN 70/30 [Suspect]
     Indication: DIABETES MELLITUS
     Dosage: UNK, UNK
     Dates: start: 19950101, end: 20060101

REACTIONS (15)
  - BLOOD GLUCOSE DECREASED [None]
  - BLOOD GLUCOSE INCREASED [None]
  - BONE OPERATION [None]
  - DRUG INEFFECTIVE [None]
  - EYE HAEMORRHAGE [None]
  - EYE OPERATION [None]
  - FURUNCLE [None]
  - GANGRENE [None]
  - INFECTION [None]
  - NEUROPATHY PERIPHERAL [None]
  - OPEN WOUND [None]
  - RETINAL DETACHMENT [None]
  - RETINAL SCAR [None]
  - SURGERY [None]
  - VISUAL ACUITY REDUCED [None]
